FAERS Safety Report 8199019-7 (Version None)
Quarter: 2012Q1

REPORT INFORMATION
  Report Type: 
  Country: None (occurrence: None)
  Receive Date: 20120309
  Receipt Date: 20120305
  Transmission Date: 20120608
  Serious: Yes (Death, Hospitalization)
  Sender: FDA-Public Use
  Company Number: US-GLAXOSMITHKLINE-A0933760A

PATIENT
  Sex: Female

DRUGS (1)
  1. AVANDIA [Suspect]
     Indication: DIABETES MELLITUS
     Route: 048
     Dates: start: 20080101

REACTIONS (5)
  - CARDIAC FAILURE CONGESTIVE [None]
  - STENT PLACEMENT [None]
  - MYOCARDIAL INFARCTION [None]
  - CARDIAC DEATH [None]
  - COMA [None]
